FAERS Safety Report 10102472 (Version 1)
Quarter: 2014Q2

REPORT INFORMATION
  Report Type: Spontaneous
  Country: HR (occurrence: HR)
  Receive Date: 20140424
  Receipt Date: 20140424
  Transmission Date: 20141212
  Serious: Yes (Hospitalization)
  Sender: FDA-Public Use
  Company Number: HR-PERRIGO-14HR004185

PATIENT
  Sex: 0

DRUGS (1)
  1. IBUPROFEN 200 MG 604 [Suspect]
     Indication: PRODUCT USED FOR UNKNOWN INDICATION
     Dosage: UNKNOWN, UNKNOWN
     Route: 048

REACTIONS (1)
  - Upper gastrointestinal haemorrhage [Unknown]
